FAERS Safety Report 4951741-9 (Version None)
Quarter: 2006Q1

REPORT INFORMATION
  Report Type: 
  Country: None (occurrence: None)
  Receive Date: 20060323
  Receipt Date: 20060215
  Transmission Date: 20060701
  Serious: Yes (Other)
  Sender: FDA-Public Use
  Company Number: 144739USA

PATIENT

DRUGS (1)
  1. MERCAPTOPURINE [Suspect]
     Dosage: 50MG UNKNOWN
     Route: 065

REACTIONS (2)
  - DRUG DISPENSING ERROR [None]
  - GRANULOCYTOPENIA [None]
